FAERS Safety Report 18335918 (Version 1)
Quarter: 2020Q4

REPORT INFORMATION
  Report Type: Other
  Country: US (occurrence: US)
  Receive Date: 20201001
  Receipt Date: 20201001
  Transmission Date: 20210113
  Serious: Yes (Hospitalization, Other)
  Sender: FDA-Public Use
  Company Number: US-NAVINTA LLC-000101

PATIENT
  Age: 71 Year
  Sex: Female

DRUGS (1)
  1. HYDRALAZINE [Suspect]
     Active Substance: HYDRALAZINE HYDROCHLORIDE
     Indication: HYPERTENSION
     Dosage: 100 MG TWICE DAILY FOR TWO YEARS

REACTIONS (7)
  - Atrial fibrillation [Unknown]
  - Confusional state [Unknown]
  - Hypertensive emergency [Unknown]
  - Pericardial effusion [Recovered/Resolved]
  - Abdominal pain [Unknown]
  - Cerebrovascular accident [Unknown]
  - Lupus-like syndrome [Unknown]
